FAERS Safety Report 6676436-5 (Version None)
Quarter: 2010Q2

REPORT INFORMATION
  Report Type: 
  Country: None (occurrence: None)
  Receive Date: 20100412
  Receipt Date: 20100331
  Transmission Date: 20101027
  Serious: Yes (Other)
  Sender: FDA-Public Use
  Company Number: PHHY2010US20476

PATIENT
  Sex: Male
  Weight: 99.773 kg

DRUGS (2)
  1. TEKTURNA [Suspect]
     Dosage: 300 (UNITS NOT SPECIFIED), QD
     Route: 048
     Dates: start: 20100208, end: 20100303
  2. DIOVAN [Concomitant]
     Dosage: 320 (UNITS NOT SPECIFIED)

REACTIONS (2)
  - BRONCHOSPASM [None]
  - COUGH [None]
